FAERS Safety Report 7409048-6 (Version None)
Quarter: 2011Q2

REPORT INFORMATION
  Report Type: 
  Country: None (occurrence: None)
  Receive Date: 20110412
  Receipt Date: 20110408
  Transmission Date: 20111010
  Serious: Yes (Death)
  Sender: FDA-Public Use
  Company Number: PHBS2007US21922

PATIENT
  Sex: Male

DRUGS (1)
  1. EXJADE [Suspect]
     Dosage: 500 MG, UNK

REACTIONS (6)
  - DIZZINESS [None]
  - ASTHENIA [None]
  - DRUG INEFFECTIVE [None]
  - NEOPLASM MALIGNANT [None]
  - MALAISE [None]
  - DYSPNOEA [None]
